FAERS Safety Report 16580074 (Version 1)
Quarter: 2019Q3

REPORT INFORMATION
  Report Type: Spontaneous
  Country: US (occurrence: US)
  Receive Date: 20190716
  Receipt Date: 20190716
  Transmission Date: 20191004
  Serious: No
  Sender: FDA-Public Use
  Company Number: US-BAUSCH-BL-2019-018902

PATIENT
  Sex: Male

DRUGS (1)
  1. LOTEMAX [Suspect]
     Active Substance: LOTEPREDNOL ETABONATE
     Indication: POSTOPERATIVE CARE
     Dosage: IN THE RIGHT EYE FOR 1 MONTH.
     Route: 047
     Dates: start: 201906

REACTIONS (2)
  - Inappropriate schedule of product administration [Unknown]
  - Insomnia [Unknown]

NARRATIVE: CASE EVENT DATE: 201906
